FAERS Safety Report 24613607 (Version 2)
Quarter: 2024Q4

REPORT INFORMATION
  Report Type: Spontaneous
  Country: FR (occurrence: FR)
  Receive Date: 20241113
  Receipt Date: 20241119
  Transmission Date: 20250115
  Serious: Yes (Other)
  Sender: SANDOZ
  Company Number: None

PATIENT
  Age: 52 Year
  Sex: Female
  Weight: 76.4 kg

DRUGS (11)
  1. AMBISOME [Suspect]
     Active Substance: AMPHOTERICIN B
     Indication: Candida infection
     Dosage: 250.000MG
     Route: 042
     Dates: start: 20240918, end: 20240930
  2. AMBISOME [Suspect]
     Active Substance: AMPHOTERICIN B
     Dosage: 250.000MG
     Route: 042
     Dates: start: 20241002, end: 20241007
  3. CLINDAMYCIN [Suspect]
     Active Substance: CLINDAMYCIN
     Indication: Septic shock
     Dosage: 600.000MG TID
     Route: 042
     Dates: start: 20241002, end: 20241010
  4. FILGRASTIM [Suspect]
     Active Substance: FILGRASTIM
     Indication: Neutropenia
     Dosage: 0.500MG QD
     Route: 058
     Dates: start: 20240927, end: 20241009
  5. ONDANSETRON [Suspect]
     Active Substance: ONDANSETRON
     Indication: Abdominal pain
     Dosage: 8.000MG
     Route: 042
     Dates: start: 20240912, end: 20241002
  6. TRIMEBUTINE [Suspect]
     Active Substance: TRIMEBUTINE
     Indication: Abdominal pain
     Dosage: 50.000MG TID
     Route: 042
     Dates: start: 20240917, end: 20241010
  7. PIPERACILLIN SODIUM\TAZOBACTAM SODIUM [Suspect]
     Active Substance: PIPERACILLIN SODIUM\TAZOBACTAM SODIUM
     Indication: Septic shock
     Dosage: 4.000G TID
     Route: 042
     Dates: start: 20241002, end: 20241010
  8. ACYCLOVIR [Concomitant]
     Active Substance: ACYCLOVIR
     Indication: Product used for unknown indication
     Dosage: 250.000MG TID
     Route: 042
     Dates: start: 20240929
  9. NEFOPAM [Concomitant]
     Active Substance: NEFOPAM
     Indication: Abdominal pain
     Dosage: 60.000MG
     Route: 042
     Dates: start: 20240917
  10. PANTOPRAZOLE [Concomitant]
     Active Substance: PANTOPRAZOLE
     Indication: Product used for unknown indication
     Dosage: 40.000MG QD
     Route: 042
     Dates: start: 20240923
  11. VITAMIN K [Concomitant]
     Active Substance: PHYTONADIONE
     Indication: Product used for unknown indication
     Dosage: 10.000MG
     Route: 042
     Dates: start: 20240917

REACTIONS (2)
  - Proteinuria [Recovering/Resolving]
  - Renal tubular disorder [Recovering/Resolving]

NARRATIVE: CASE EVENT DATE: 20241004
